FAERS Safety Report 14776427 (Version 1)
Quarter: 2018Q2

REPORT INFORMATION
  Report Type: Spontaneous
  Country: US (occurrence: US)
  Receive Date: 20180418
  Receipt Date: 20180418
  Transmission Date: 20180711
  Serious: Yes (Hospitalization)
  Sender: FDA-Public Use
  Company Number: US-SA-2018SA007651

PATIENT
  Sex: Male

DRUGS (1)
  1. VANDETANIB. [Suspect]
     Active Substance: VANDETANIB
     Route: 048

REACTIONS (1)
  - Hypoglycaemia [Unknown]
